FAERS Safety Report 15121571 (Version 1)
Quarter: 2018Q3

REPORT INFORMATION
  Report Type: Spontaneous
  Country: JP (occurrence: JP)
  Receive Date: 20180709
  Receipt Date: 20180709
  Transmission Date: 20181010
  Serious: Yes (Hospitalization, Other)
  Sender: FDA-Public Use
  Company Number: JP-JNJFOC-20180709457

PATIENT
  Age: 5 Decade
  Sex: Female

DRUGS (20)
  1. TRESIBA [Concomitant]
     Active Substance: INSULIN DEGLUDEC
     Indication: TYPE 2 DIABETES MELLITUS
     Route: 051
     Dates: start: 20170427, end: 20170601
  2. LORAZEPAM. [Concomitant]
     Active Substance: LORAZEPAM
     Dosage: BEFORE ADMINISTRATION OF CANAGLIFLOZIN
     Route: 048
  3. TRESIBA [Concomitant]
     Active Substance: INSULIN DEGLUDEC
     Indication: TYPE 2 DIABETES MELLITUS
     Route: 051
     Dates: start: 20171023, end: 20171119
  4. CRESTOR [Concomitant]
     Active Substance: ROSUVASTATIN CALCIUM
     Dosage: BEFORE ADMINISTRATION OF CANAGLIFLOZIN
     Route: 048
  5. FLUNITRAZEPAM [Concomitant]
     Active Substance: FLUNITRAZEPAM
     Dosage: BEFORE ADMINISTRATION OF CANAGLIFLOZIN
     Route: 048
  6. CYMBALTA [Concomitant]
     Active Substance: DULOXETINE HYDROCHLORIDE
     Dosage: BEFORE ADMINISTRATION OF CANAGLIFLOZIN
     Route: 048
  7. METGLUCO [Concomitant]
     Active Substance: METFORMIN HYDROCHLORIDE
     Indication: TYPE 2 DIABETES MELLITUS
     Dosage: BEFORE ADMINISTRATION OF CANAGLIFLOZIN
     Route: 048
  8. NOVORAPID [Concomitant]
     Active Substance: INSULIN ASPART
     Indication: TYPE 2 DIABETES MELLITUS
     Dosage: BEFORE ADMINISTRATION OF CANAGLIFLOZIN
     Route: 051
     Dates: end: 20170926
  9. MAGMITT [Concomitant]
     Active Substance: MAGNESIUM OXIDE
     Dosage: BEFORE ADMINISTRATION OF CANAGLIFLOZIN
     Route: 048
  10. TRIAZOLAM. [Concomitant]
     Active Substance: TRIAZOLAM
     Dosage: BEFORE ADMINISTRATION OF CANAGLIFLOZIN
     Route: 048
  11. CANAGLU [Suspect]
     Active Substance: CANAGLIFLOZIN
     Indication: TYPE 2 DIABETES MELLITUS
     Route: 048
     Dates: start: 20160225
  12. TRESIBA [Concomitant]
     Active Substance: INSULIN DEGLUDEC
     Indication: TYPE 2 DIABETES MELLITUS
     Route: 051
     Dates: start: 20170602, end: 20170713
  13. TRESIBA [Concomitant]
     Active Substance: INSULIN DEGLUDEC
     Indication: TYPE 2 DIABETES MELLITUS
     Route: 051
     Dates: start: 20170926, end: 20171022
  14. TRESIBA [Concomitant]
     Active Substance: INSULIN DEGLUDEC
     Indication: TYPE 2 DIABETES MELLITUS
     Route: 051
     Dates: start: 20171120
  15. TRESIBA [Concomitant]
     Active Substance: INSULIN DEGLUDEC
     Indication: TYPE 2 DIABETES MELLITUS
     Dosage: BEFORE ADMINISTRATION OF CANAGLIFLOZIN
     Route: 051
     Dates: end: 20170427
  16. TRESIBA [Concomitant]
     Active Substance: INSULIN DEGLUDEC
     Indication: TYPE 2 DIABETES MELLITUS
     Route: 051
     Dates: start: 20170714, end: 20170925
  17. LOTRIGA [Concomitant]
     Active Substance: OMEGA-3-ACID ETHYL ESTERS
     Dosage: BEFORE ADMINISTRATION OF CANAGLIFLOZIN
     Route: 048
  18. SOLANAX [Concomitant]
     Active Substance: ALPRAZOLAM
     Dosage: BEFORE ADMINISTRATION OF CANAGLIFLOZIN
     Route: 048
  19. CONTOMIN [Concomitant]
     Active Substance: CHLORPROMAZINE
     Dosage: BEFORE ADMINISTRATION OF CANAGLIFLOZIN
     Route: 048
  20. LEVOMEPROMAZINE [Concomitant]
     Active Substance: LEVOMEPROMAZINE
     Dosage: BEFORE ADMINISTRATION OF CANAGLIFLOZIN
     Route: 048

REACTIONS (1)
  - Schizophrenia [Recovering/Resolving]

NARRATIVE: CASE EVENT DATE: 20170902
